FAERS Safety Report 5822273-0 (Version None)
Quarter: 2008Q3

REPORT INFORMATION
  Report Type: 
  Country: None (occurrence: None)
  Receive Date: 20080725
  Receipt Date: 20080714
  Transmission Date: 20090109
  Serious: Yes (Hospitalization)
  Sender: FDA-Public Use
  Company Number: DE-NOVOPROD-272875

PATIENT
  Sex: Female

DRUGS (2)
  1. NOVOSEVEN [Suspect]
     Indication: DRUG USE FOR UNKNOWN INDICATION
     Dosage: 1.2 MG, PRN
     Route: 042
  2. PANTOZOL                           /01263202/ [Concomitant]
     Dosage: 40 MG, QD

REACTIONS (2)
  - ANGIOEDEMA [None]
  - URTICARIA [None]
